FAERS Safety Report 25785971 (Version 1)
Quarter: 2025Q3

REPORT INFORMATION
  Report Type: Report from Study
  Country: US (occurrence: US)
  Receive Date: 20250910
  Receipt Date: 20250910
  Transmission Date: 20251020
  Serious: No
  Sender: MALLINCKRODT
  Company Number: US-MALLINCKRODT-MNK202505578

PATIENT
  Age: 72 Year
  Sex: Male

DRUGS (1)
  1. CORTICOTROPIN [Suspect]
     Active Substance: CORTICOTROPIN
     Indication: Nephrotic syndrome
     Dosage: 40 UNITS
     Dates: start: 20250817

REACTIONS (2)
  - Therapy non-responder [Unknown]
  - Protein urine present [None]

NARRATIVE: CASE EVENT DATE: 20250101
